FAERS Safety Report 25029177 (Version 1)
Quarter: 2025Q1

REPORT INFORMATION
  Report Type: Spontaneous
  Country: US (occurrence: US)
  Receive Date: 20250303
  Receipt Date: 20250303
  Transmission Date: 20250409
  Serious: Yes (Other)
  Sender: BRISTOL-MYERS SQUIBB COMPANY
  Company Number: US-BRISTOL-MYERS SQUIBB COMPANY-2025-025944

PATIENT
  Age: 87 Year
  Sex: Male

DRUGS (1)
  1. LENALIDOMIDE [Suspect]
     Active Substance: LENALIDOMIDE
     Indication: Plasma cell myeloma
     Dosage: TAKE 1 CAPSULE BY MOUTH EVERY DAY
     Route: 048
     Dates: start: 20250205

REACTIONS (7)
  - Haemoglobin decreased [Unknown]
  - Cancer pain [Unknown]
  - Urine output decreased [Unknown]
  - Skin abrasion [Unknown]
  - Prostatomegaly [Unknown]
  - Treatment noncompliance [Unknown]
  - Depression [Unknown]
